FAERS Safety Report 10599247 (Version 1)
Quarter: 2014Q4

REPORT INFORMATION
  Report Type: Spontaneous
  Country: CO (occurrence: None)
  Receive Date: 20141119
  Receipt Date: 20141119
  Transmission Date: 20150529
  Serious: Yes (Hospitalization)
  Sender: FDA-Public Use
  Company Number: IPC201411-000605

PATIENT
  Age: 46 Year
  Sex: Female

DRUGS (1)
  1. METOCLOPRAMIDE HYDROCHLORIDE (METOCLOPRAMIDE HYDROCHLORIDE) (METOCLOPRAMIDE HYDROCHLORIDE) [Suspect]
     Active Substance: METOCLOPRAMIDE HYDROCHLORIDE

REACTIONS (8)
  - Hypotension [None]
  - Swollen tongue [None]
  - Bradycardia [None]
  - Stridor [None]
  - Anaphylactic reaction [None]
  - Cardiac output decreased [None]
  - No therapeutic response [None]
  - Sinus arrhythmia [None]
